FAERS Safety Report 5667640-3 (Version None)
Quarter: 2008Q1

REPORT INFORMATION
  Report Type: 
  Country: None (occurrence: None)
  Receive Date: 20080315
  Receipt Date: 20080130
  Transmission Date: 20080703
  Serious: No
  Sender: FDA-Public Use
  Company Number: US-ABBOTT-08P-163-0435950-00

PATIENT
  Sex: Female
  Weight: 59.02 kg

DRUGS (3)
  1. HUMIRA [Suspect]
     Indication: CROHN'S DISEASE
     Route: 058
     Dates: start: 20071003, end: 20071003
  2. INFLIXIMAB [Suspect]
     Indication: CROHN'S DISEASE
  3. BUDESONIDE [Concomitant]
     Indication: CROHN'S DISEASE

REACTIONS (1)
  - RASH [None]
